FAERS Safety Report 19265340 (Version 1)
Quarter: 2021Q2

REPORT INFORMATION
  Report Type: Spontaneous
  Country: US (occurrence: US)
  Receive Date: 20210517
  Receipt Date: 20210517
  Transmission Date: 20210717
  Serious: No
  Sender: FDA-Public Use
  Company Number: US-TORRENT-00011087

PATIENT
  Age: 78 Year
  Sex: Female
  Weight: 52 kg

DRUGS (1)
  1. TRAZODONE HYDROCHLORIDE TABLETS [Suspect]
     Active Substance: TRAZODONE HYDROCHLORIDE
     Indication: INSOMNIA
     Dates: start: 20210422, end: 20210505

REACTIONS (2)
  - Product administration error [Unknown]
  - Abdominal pain upper [Recovered/Resolved]

NARRATIVE: CASE EVENT DATE: 20210423
